FAERS Safety Report 8825264 (Version 2)
Quarter: 2013Q1

REPORT INFORMATION
  Report Type: Spontaneous
  Country: JP (occurrence: JP)
  Receive Date: 20121004
  Receipt Date: 20130226
  Transmission Date: 20140127
  Serious: Yes (Other)
  Sender: FDA-Public Use
  Company Number: JP-009507513-1210JPN001120

PATIENT
  Age: 67 Year
  Sex: Male

DRUGS (4)
  1. GLACTIV [Suspect]
     Indication: TYPE 2 DIABETES MELLITUS
     Dosage: 50 MG, QD
     Route: 048
     Dates: start: 20120620, end: 20120920
  2. BAYASPIRIN [Suspect]
     Dosage: UNK
     Route: 048
     Dates: end: 20120920
  3. PLETAAL [Suspect]
     Dosage: 100 MG, QD
     Route: 048
  4. NORVASC [Suspect]
     Dosage: 5 MG, QD
     Route: 048

REACTIONS (5)
  - Blood uric acid increased [Unknown]
  - Blood lactate dehydrogenase increased [Unknown]
  - Platelet count decreased [Unknown]
  - White blood cell count increased [Unknown]
  - Blood creatinine increased [Unknown]
